FAERS Safety Report 21139190 (Version 1)
Quarter: 2022Q3

REPORT INFORMATION
  Report Type: Spontaneous
  Country: US (occurrence: None)
  Receive Date: 20220727
  Receipt Date: 20220727
  Transmission Date: 20221026
  Serious: Yes (Other)
  Sender: FDA-Public Use
  Company Number: None

PATIENT
  Age: 65 Year
  Sex: Female
  Weight: 149.69 kg

DRUGS (24)
  1. WIXELA INHUB [Suspect]
     Active Substance: FLUTICASONE PROPIONATE\SALMETEROL XINAFOATE
     Indication: Asthma
     Dosage: FREQUENCY : TWICE A DAY;?
     Route: 055
     Dates: start: 20220625, end: 20220629
  2. PROTONIX [Concomitant]
     Active Substance: PANTOPRAZOLE SODIUM
  3. DILTIAZEM [Concomitant]
     Active Substance: DILTIAZEM
  4. CHLORTHALIDONE [Concomitant]
     Active Substance: CHLORTHALIDONE
  5. MOBIC [Concomitant]
     Active Substance: MELOXICAM
  6. FOLIC ACID [Concomitant]
     Active Substance: FOLIC ACID
  7. MUCINEX [Concomitant]
     Active Substance: GUAIFENESIN
  8. HYDRALAZINE [Concomitant]
     Active Substance: HYDRALAZINE HYDROCHLORIDE
  9. SYNTHROID [Concomitant]
     Active Substance: LEVOTHYROXINE SODIUM
  10. PAXIL [Concomitant]
     Active Substance: PAROXETINE HYDROCHLORIDE
  11. ALBUTEROL [Concomitant]
     Active Substance: ALBUTEROL
  12. DUPIXENT [Concomitant]
     Active Substance: DUPILUMAB
  13. ATROVENT [Concomitant]
     Active Substance: IPRATROPIUM BROMIDE
  14. SPIRIVA [Concomitant]
     Active Substance: TIOTROPIUM BROMIDE MONOHYDRATE
  15. ADVAIR HFA [Concomitant]
     Active Substance: FLUTICASONE PROPIONATE\SALMETEROL XINAFOATE
  16. LOSARTAN [Concomitant]
     Active Substance: LOSARTAN
  17. SINGULAIR [Concomitant]
     Active Substance: MONTELUKAST SODIUM
  18. GABAPENTIN [Concomitant]
     Active Substance: GABAPENTIN
  19. VITAMIN D3 [Concomitant]
     Active Substance: CHOLECALCIFEROL
  20. VITAMIN B12 [Concomitant]
     Active Substance: CYANOCOBALAMIN
  21. XYZAL [Concomitant]
     Active Substance: LEVOCETIRIZINE DIHYDROCHLORIDE
  22. AZELASTINE [Concomitant]
     Active Substance: AZELASTINE
  23. Flonase [Concomitant]
  24. FERROUS SULFATE [Concomitant]
     Active Substance: FERROUS SULFATE

REACTIONS (10)
  - Cough [None]
  - Device difficult to use [None]
  - Glossodynia [None]
  - Tongue erythema [None]
  - Tongue discolouration [None]
  - Tongue exfoliation [None]
  - Toxicity to various agents [None]
  - Glossodynia [None]
  - Hypophagia [None]
  - Incorrect dose administered [None]

NARRATIVE: CASE EVENT DATE: 20220630
